FAERS Safety Report 9193686 (Version 1)
Quarter: 2013Q1

REPORT INFORMATION
  Report Type: Spontaneous
  Country: IT (occurrence: IT)
  Receive Date: 20130327
  Receipt Date: 20130327
  Transmission Date: 20140127
  Serious: Yes (Death)
  Sender: FDA-Public Use
  Company Number: IT-GLAXOSMITHKLINE-B0878300A

PATIENT
  Sex: 0

DRUGS (6)
  1. VOTRIENT [Suspect]
     Indication: RENAL CELL CARCINOMA
     Dosage: 800MG PER DAY
     Route: 048
     Dates: start: 20121116, end: 20121228
  2. HYDROCORTISONE [Concomitant]
     Dosage: 20MG PER DAY
     Route: 048
  3. FLORINEF [Concomitant]
     Dosage: .15MG PER DAY
     Route: 065
  4. TRIATEC [Concomitant]
     Route: 065
  5. CLEXANE [Concomitant]
     Dosage: 4000MG PER DAY
     Route: 065
  6. LANSOX [Concomitant]
     Dosage: 30MG PER DAY
     Route: 065

REACTIONS (2)
  - Hepatitis acute [Unknown]
  - Disease progression [Fatal]
